FAERS Safety Report 13505334 (Version 1)
Quarter: 2017Q2

REPORT INFORMATION
  Report Type: Spontaneous
  Country: BR (occurrence: BR)
  Receive Date: 20170502
  Receipt Date: 20170502
  Transmission Date: 20170830
  Serious: Yes (Hospitalization)
  Sender: FDA-Public Use
  Company Number: BR-GLAXOSMITHKLINE-BR2017GSK057096

PATIENT
  Age: 6 Year
  Sex: Female
  Weight: 24 kg

DRUGS (7)
  1. RINOSORO (SODIUM CHLORIDE) [Concomitant]
     Dosage: UNK
     Route: 045
     Dates: start: 20130724
  2. DIPIRONE [Suspect]
     Active Substance: METAMIZOLE SODIUM
     Indication: PRODUCT USED FOR UNKNOWN INDICATION
     Dosage: UNK
     Route: 048
  3. AMOXICILLIN. [Suspect]
     Active Substance: AMOXICILLIN
     Indication: TONSILLITIS
     Dosage: UNK
  4. DRAMIN B-6 DL [Concomitant]
     Dosage: UNK
     Route: 042
     Dates: start: 20130724
  5. ZINACEF [Suspect]
     Active Substance: CEFUROXIME SODIUM
     Indication: PNEUMONIA BACTERIAL
     Dosage: 800 MG, TID
     Route: 042
     Dates: start: 20130725, end: 20130725
  6. IBUPROFEN. [Suspect]
     Active Substance: IBUPROFEN
     Indication: PRODUCT USED FOR UNKNOWN INDICATION
     Dosage: UNK
  7. CEFTRIAXONE SODIUM. [Suspect]
     Active Substance: CEFTRIAXONE SODIUM
     Indication: PRODUCT USED FOR UNKNOWN INDICATION
     Dosage: UNK
     Route: 042
     Dates: start: 20130724

REACTIONS (3)
  - Rash papular [Recovered/Resolved]
  - Pruritus [Recovered/Resolved]
  - Erythema [Unknown]

NARRATIVE: CASE EVENT DATE: 20130724
